FAERS Safety Report 11570291 (Version 1)
Quarter: 2015Q3

REPORT INFORMATION
  Report Type: Spontaneous
  Country: US (occurrence: US)
  Receive Date: 20150916
  Receipt Date: 20150916
  Transmission Date: 20151125
  Serious: No
  Sender: FDA-Public Use
  Company Number: US-ELI_LILLY_AND_COMPANY-US200909000645

PATIENT
  Age: 69 Year
  Sex: Female

DRUGS (2)
  1. FORTEO [Suspect]
     Active Substance: TERIPARATIDE
     Dosage: 20 UG, DAILY (1/D)
     Dates: end: 20090828
  2. ASA [Concomitant]
     Active Substance: ASPIRIN

REACTIONS (7)
  - Contusion [Unknown]
  - Injection site bruising [Unknown]
  - Hypoaesthesia [Unknown]
  - Coagulopathy [Unknown]
  - Pain [Unknown]
  - Bone pain [Unknown]
  - Arthralgia [Unknown]
